FAERS Safety Report 8299820 (Version 3)
Quarter: 2012Q4

REPORT INFORMATION
  Report Type: 
  Country: JP (occurrence: JP)
  Receive Date: 20111219
  Receipt Date: 20121003
  Transmission Date: 20130627
  Serious: Yes (Hospitalization, Other)
  Sender: FDA-Public Use
  Company Number: PHHY2011JP108345

PATIENT
  Age: 32 Year
  Sex: Male
  Weight: 52 kg

DRUGS (11)
  1. LEPONEX / CLOZARIL [Suspect]
     Indication: SCHIZOPHRENIA
     Dosage: 175 mg, daily
     Route: 048
     Dates: start: 20110810
  2. LEPONEX / CLOZARIL [Suspect]
     Dosage: 300 mg, daily
     Route: 048
     Dates: start: 20111111, end: 20111115
  3. LEPONEX / CLOZARIL [Suspect]
     Dosage: 175 mg, daily
     Route: 048
     Dates: start: 20111116, end: 20111129
  4. LEPONEX / CLOZARIL [Suspect]
     Dosage: 200 mg, daily
     Route: 048
     Dates: start: 20111130, end: 20120120
  5. LEPONEX / CLOZARIL [Suspect]
     Dosage: 225 mg, daily
     Route: 048
     Dates: start: 20120121, end: 20120207
  6. LEPONEX / CLOZARIL [Suspect]
     Dosage: 250 mg, daily
     Route: 048
     Dates: start: 20120208
  7. SLOWHEIM [Concomitant]
     Indication: SCHIZOPHRENIA
     Dosage: 7.5 mg, UNK
     Route: 048
     Dates: start: 20111111
  8. WYPAX [Concomitant]
     Indication: SCHIZOPHRENIA
     Dosage: 1.5 mg, UNK
     Route: 048
     Dates: start: 20111111
  9. SELENICA-R [Concomitant]
     Indication: SCHIZOPHRENIA
     Dosage: 800 mg, UNK
     Route: 048
     Dates: start: 20111111
  10. LIMAS [Concomitant]
     Indication: SCHIZOPHRENIA
     Dosage: 400 mg, UNK
     Route: 048
     Dates: start: 20111111
  11. MAGMITT [Concomitant]
     Indication: PROPHYLAXIS
     Dosage: 1000 mg, UNK
     Route: 048
     Dates: start: 20111111

REACTIONS (4)
  - Appendicitis [Recovered/Resolved]
  - Abdominal pain [Recovered/Resolved]
  - C-reactive protein increased [Unknown]
  - Constipation [Recovered/Resolved]
